FAERS Safety Report 5527970-2 (Version None)
Quarter: 2007Q4

REPORT INFORMATION
  Report Type: 
  Country: None (occurrence: None)
  Receive Date: 20071128
  Receipt Date: 20071120
  Transmission Date: 20080405
  Serious: Yes (Hospitalization)
  Sender: FDA-Public Use
  Company Number: US-ROCHE-532802

PATIENT
  Age: 64 Year
  Sex: Female

DRUGS (10)
  1. BONIVA [Suspect]
     Indication: OSTEOPOROSIS
     Route: 065
  2. LORTAB [Concomitant]
  3. COREG [Concomitant]
  4. LIPITOR [Concomitant]
  5. EFFEXOR [Concomitant]
     Dosage: REPORTED AS 'EFFEXXOR'
  6. SYNTHROID [Concomitant]
     Dosage: DISCHARGED FROM HOSPITAL ON A LOWER DOSE OF SYNTHROID
  7. DIOVAN [Concomitant]
  8. COUMADIN [Concomitant]
  9. MULTI-VITAMIN [Concomitant]
     Dosage: REPORTED AS MULTIPLE VITAMIN
  10. VITAMIN B [Concomitant]

REACTIONS (6)
  - ABDOMINAL PAIN [None]
  - BLOOD PRESSURE ABNORMAL [None]
  - DIARRHOEA [None]
  - INFLUENZA LIKE ILLNESS [None]
  - MUSCULOSKELETAL PAIN [None]
  - WEIGHT DECREASED [None]
